FAERS Safety Report 7969649-3 (Version None)
Quarter: 2011Q4

REPORT INFORMATION
  Report Type: 
  Country: None (occurrence: None)
  Receive Date: 20111212
  Receipt Date: 20111205
  Transmission Date: 20120403
  Serious: Yes (Life-Threatening, Congenital Anomaly)
  Sender: FDA-Public Use
  Company Number: US-JNJFOC-20110805772

PATIENT
  Sex: Male

DRUGS (1)
  1. TOPAMAX [Suspect]
     Indication: FOETAL EXPOSURE DURING PREGNANCY
     Route: 064
     Dates: start: 20070101, end: 20080728

REACTIONS (4)
  - EMOTIONAL DISTRESS [None]
  - CLEFT LIP AND PALATE [None]
  - CONGENITAL ANOMALY [None]
  - EMOTIONAL DISORDER [None]
